FAERS Safety Report 16835324 (Version 1)
Quarter: 2019Q3

REPORT INFORMATION
  Report Type: Report from Study
  Country: US (occurrence: US)
  Receive Date: 20190920
  Receipt Date: 20190920
  Transmission Date: 20191005
  Serious: Yes (Hospitalization, Other)
  Sender: FDA-Public Use
  Company Number: US-GILEAD-2019-0429398

PATIENT
  Age: 49 Year
  Sex: Male

DRUGS (11)
  1. TEMAZEPAM. [Concomitant]
     Active Substance: TEMAZEPAM
  2. ADVAIR HFA [Concomitant]
     Active Substance: FLUTICASONE PROPIONATE\SALMETEROL XINAFOATE
  3. ELIQUIS [Concomitant]
     Active Substance: APIXABAN
  4. SODIUM CHLORIDE. [Concomitant]
     Active Substance: SODIUM CHLORIDE
  5. TESTO ENANT [Concomitant]
     Active Substance: TESTOSTERONE ENANTHATE
  6. AZITHROMYCIN ANHYDROUS. [Concomitant]
     Active Substance: AZITHROMYCIN ANHYDROUS
  7. PREDNISONE. [Concomitant]
     Active Substance: PREDNISONE
  8. PULMOZYME [Concomitant]
     Active Substance: DORNASE ALFA
  9. AZTREONAM LYSINE [Suspect]
     Active Substance: AZTREONAM LYSINE
     Indication: CYSTIC FIBROSIS
     Dosage: 75 MG, TID 28 DAYS ON/OFF
     Dates: start: 20140131
  10. CIPROFLOXACIN. [Concomitant]
     Active Substance: CIPROFLOXACIN
  11. TOBI [Concomitant]
     Active Substance: TOBRAMYCIN

REACTIONS (1)
  - Pneumonia [Unknown]

NARRATIVE: CASE EVENT DATE: 20190911
